FAERS Safety Report 7581231-9 (Version None)
Quarter: 2011Q2

REPORT INFORMATION
  Report Type: 
  Country: None (occurrence: None)
  Receive Date: 20110629
  Receipt Date: 20110622
  Transmission Date: 20111010
  Serious: Yes (Other)
  Sender: FDA-Public Use
  Company Number: MX-JNJFOC-20110402992

PATIENT
  Age: 74 Year
  Sex: Female
  Weight: 45 kg

DRUGS (8)
  1. METHOTREXATE [Suspect]
     Indication: RHEUMATOID ARTHRITIS
     Route: 048
     Dates: start: 20100701, end: 20110305
  2. SULFASALAZINE [Concomitant]
     Indication: RHEUMATOID ARTHRITIS
     Route: 048
     Dates: start: 20080101, end: 20110405
  3. FOLIC ACID [Concomitant]
     Indication: RHEUMATOID ARTHRITIS
     Route: 048
     Dates: start: 20100401, end: 20110405
  4. OMEPRAZOLE [Concomitant]
     Indication: GASTRITIS
     Route: 048
     Dates: start: 20080101
  5. GOLIMUMAB [Suspect]
     Route: 058
     Dates: start: 20100930, end: 20110328
  6. AZATHIOPRINE [Suspect]
     Indication: RHEUMATOID ARTHRITIS
     Route: 048
     Dates: start: 20080101, end: 20110405
  7. DEFLAZACORT [Suspect]
     Indication: RHEUMATOID ARTHRITIS
     Route: 048
     Dates: start: 20100401
  8. GOLIMUMAB [Suspect]
     Indication: RHEUMATOID ARTHRITIS
     Route: 058
     Dates: start: 20110428

REACTIONS (1)
  - CELLULITIS [None]
